FAERS Safety Report 9312379 (Version 2)
Quarter: 2013Q2

REPORT INFORMATION
  Report Type: Spontaneous
  Country: US (occurrence: None)
  Receive Date: 20130509
  Receipt Date: 20130524
  Transmission Date: 20140414
  Serious: Yes (Hospitalization)
  Sender: FDA-Public Use
  Company Number: 2013PROUSA02779

PATIENT
  Age: 77 Year
  Sex: Male
  Weight: 127 kg

DRUGS (1)
  1. PROVENGE [Suspect]
     Indication: PROSTATE CANCER METASTATIC
     Dosage: 250 ML, SINGLE, INTRAVENOUS
     Route: 042
     Dates: start: 20130124, end: 20130124

REACTIONS (5)
  - Spinal fracture [None]
  - Fall [None]
  - Spinal cord compression [None]
  - Muscular weakness [None]
  - Back pain [None]
